FAERS Safety Report 4365780-2 (Version None)
Quarter: 2004Q2

REPORT INFORMATION
  Report Type: 
  Country: None (occurrence: None)
  Receive Date: 20040520
  Receipt Date: 20040423
  Transmission Date: 20050107
  Serious: Yes (Death)
  Sender: FDA-Public Use
  Company Number: 2004213290US

PATIENT
  Age: 72 Year
  Sex: Female

DRUGS (4)
  1. HYDROXYUREA [Suspect]
     Indication: ACUTE MYELOMONOCYTIC LEUKAEMIA
  2. CYTARABINE [Suspect]
     Indication: ACUTE MYELOMONOCYTIC LEUKAEMIA
  3. IDARUBICIN HCL [Suspect]
     Indication: ACUTE MYELOMONOCYTIC LEUKAEMIA
  4. ALLOPURINOL [Concomitant]

REACTIONS (3)
  - ACUTE LEUKAEMIA [None]
  - DISSEMINATED INTRAVASCULAR COAGULATION [None]
  - TUMOUR LYSIS SYNDROME [None]
